FAERS Safety Report 18305136 (Version 3)
Quarter: 2020Q4

REPORT INFORMATION
  Report Type: Spontaneous
  Country: FR (occurrence: FR)
  Receive Date: 20200924
  Receipt Date: 20201021
  Transmission Date: 20210113
  Serious: Yes (Death, Other)
  Sender: FDA-Public Use
  Company Number: NVSC2020FR259273

PATIENT
  Age: 52 Year
  Sex: Male

DRUGS (6)
  1. VINCRISTINE [Suspect]
     Active Substance: VINCRISTINE
     Dosage: ONE CYCLE OF COPADM REGIMEN
     Route: 065
  2. PREDNISOLONE. [Suspect]
     Active Substance: PREDNISOLONE
     Indication: BURKITT^S LYMPHOMA
     Dosage: 1 CYCLE( COPADM REGIMEN)
     Route: 065
  3. CYCLOPHOSPHAMIDE. [Suspect]
     Active Substance: CYCLOPHOSPHAMIDE
     Indication: BURKITT^S LYMPHOMA
     Dosage: 1 CYCLE(COPADM REGIMEN )
     Route: 065
  4. METHOTREXATE. [Suspect]
     Active Substance: METHOTREXATE
     Indication: BURKITT^S LYMPHOMA
     Dosage: 1 CYCLE ( COPADM REGIMEN)
     Route: 065
  5. VINCRISTINE [Suspect]
     Active Substance: VINCRISTINE
     Indication: BURKITT^S LYMPHOMA
     Dosage: 1 CYCLE
     Route: 065
  6. DOXORUBICIN [Suspect]
     Active Substance: DOXORUBICIN
     Indication: BURKITT^S LYMPHOMA
     Dosage: 1 CYCLE
     Route: 065

REACTIONS (3)
  - Febrile neutropenia [Fatal]
  - Cytomegalovirus infection reactivation [Fatal]
  - Aspergillus infection [Fatal]
